FAERS Safety Report 23288022 (Version 1)
Quarter: 2023Q4

REPORT INFORMATION
  Report Type: Spontaneous
  Country: JP (occurrence: JP)
  Receive Date: 20231212
  Receipt Date: 20231212
  Transmission Date: 20240110
  Serious: Yes (Other)
  Sender: FDA-Public Use
  Company Number: JP-PFIZER INC-202300435210

PATIENT

DRUGS (1)
  1. VIBRAMYCIN [Suspect]
     Active Substance: DOXYCYCLINE
     Dosage: UNK
     Route: 048

REACTIONS (4)
  - Pseudomembranous colitis [Unknown]
  - Faeces discoloured [Unknown]
  - Abdominal pain upper [Unknown]
  - Diarrhoea [Unknown]
